FAERS Safety Report 11893149 (Version 1)
Quarter: 2016Q1

REPORT INFORMATION
  Report Type: Spontaneous
  Country: US (occurrence: US)
  Receive Date: 20160106
  Receipt Date: 20160106
  Transmission Date: 20160526
  Serious: Yes (Other)
  Sender: FDA-Public Use
  Company Number: US-TORRENT-00001089

PATIENT
  Sex: Female
  Weight: 81 kg

DRUGS (1)
  1. LOSARTAN POTASSIUM (50 MG) + HCTZ (12.5 MG) [Suspect]
     Active Substance: HYDROCHLOROTHIAZIDE\LOSARTAN POTASSIUM
     Indication: HYPERTENSION
     Dosage: LOSARTAN 50MG AND HCTZ 12.5 MG?
     Dates: start: 201506

REACTIONS (4)
  - Eyelid rash [Recovered/Resolved]
  - Thought blocking [Recovered/Resolved]
  - Mental impairment [Recovered/Resolved]
  - Vision blurred [Recovered/Resolved]
